FAERS Safety Report 9877168 (Version 1)
Quarter: 2014Q1

REPORT INFORMATION
  Report Type: Spontaneous
  Country: US (occurrence: US)
  Receive Date: 20140206
  Receipt Date: 20140206
  Transmission Date: 20141002
  Serious: No
  Sender: FDA-Public Use
  Company Number: US-JNJFOC-20140116249

PATIENT
  Age: 82 Year
  Sex: Male
  Weight: 61.24 kg

DRUGS (2)
  1. UNSPECIFIED FENTANYL TRANSDERMAL SYSTEM [Suspect]
     Indication: PAIN
     Route: 062
  2. HYDROCODONE/APAP [Concomitant]
     Indication: PAIN
     Dosage: 10-500 MG TABLET
     Route: 048

REACTIONS (3)
  - Drug ineffective [Not Recovered/Not Resolved]
  - Incoherent [Recovered/Resolved]
  - Incorrect drug administration duration [Recovered/Resolved]
